FAERS Safety Report 6297613-1 (Version None)
Quarter: 2009Q3

REPORT INFORMATION
  Report Type: 
  Country: None (occurrence: None)
  Receive Date: 20090805
  Receipt Date: 20090305
  Transmission Date: 20100115
  Serious: Yes (Hospitalization)
  Sender: FDA-Public Use
  Company Number: FR-PFIZER INC-2009245115

PATIENT
  Age: 35 Year

DRUGS (2)
  1. ZOLOFT [Suspect]
     Indication: PANIC ATTACK
     Dosage: 3 DF, 1X/DAY
     Route: 048
  2. XANAX [Suspect]
     Indication: PANIC ATTACK
     Dosage: UNK
     Route: 048

REACTIONS (1)
  - INTRA-UTERINE DEATH [None]
